FAERS Safety Report 25084169 (Version 2)
Quarter: 2025Q4

REPORT INFORMATION
  Report Type: Report from Study
  Country: EU (occurrence: EU)
  Receive Date: 20250317
  Receipt Date: 20251010
  Transmission Date: 20260117
  Serious: Yes (Hospitalization)
  Sender: ABBVIE
  Company Number: EU-ABBVIE-6181590

PATIENT
  Age: 59 Year
  Sex: Male
  Weight: 86 kg

DRUGS (12)
  1. FOSCARBIDOPA\FOSLEVODOPA [Suspect]
     Active Substance: FOSCARBIDOPA\FOSLEVODOPA
     Indication: Parkinson^s disease
     Dosage: FLOW RATE: 0.27 ML/H.?DURATION OF DAILY INFUSION: 16 HOURS.?DAILY DOSE OF FOSLEVODOPA/FOSCARBIDOP...
     Route: 058
     Dates: start: 20241211, end: 20241211
  2. FOSCARBIDOPA\FOSLEVODOPA [Suspect]
     Active Substance: FOSCARBIDOPA\FOSLEVODOPA
     Dosage: FLOW RATE: 0.3 ML/H.?DURATION OF DAILY INFUSION: 16 HOURS.?DAILY DOSE OF FOSLEVODOPA/FOSCARBIDOPA...
     Route: 058
     Dates: start: 20241212, end: 20241214
  3. FOSCARBIDOPA\FOSLEVODOPA [Suspect]
     Active Substance: FOSCARBIDOPA\FOSLEVODOPA
     Dosage: FLOW RATE: 0.35 ML/H.?DURATION OF DAILY INFUSION: 16 HOURS.?DAILY DOSE OF FOSLEVODOPA/FOSCARBIDOP...
     Route: 058
     Dates: start: 20241214, end: 20241216
  4. FOSCARBIDOPA\FOSLEVODOPA [Suspect]
     Active Substance: FOSCARBIDOPA\FOSLEVODOPA
     Dosage: FLOW RATE: 0.40 ML/H.?DURATION OF DAILY INFUSION: 16 HOURS.?DAILY DOSE OF FOSLEVODOPA/FOSCARBIDOP...
     Route: 058
     Dates: start: 20241216, end: 20241217
  5. FOSCARBIDOPA\FOSLEVODOPA [Suspect]
     Active Substance: FOSCARBIDOPA\FOSLEVODOPA
     Dosage: DURATION OF THE DAILY INFUSION: 24 HR.?BASIC FLOW 0.45 ML/H DURATION 16. HOURS MORNING, AFTERNOON...
     Route: 058
     Dates: start: 20241217, end: 20241218
  6. FOSCARBIDOPA\FOSLEVODOPA [Suspect]
     Active Substance: FOSCARBIDOPA\FOSLEVODOPA
     Dosage: DURATION OF THE DAILY INFUSION: 24HR?BASIC FLOW 0.48 ML/H DURATION 16. HOURS MORNING, AFTERNOON?L...
     Route: 058
     Dates: start: 20241218, end: 20241230
  7. FOSCARBIDOPA\FOSLEVODOPA [Suspect]
     Active Substance: FOSCARBIDOPA\FOSLEVODOPA
     Dosage: DURATION OF THE DAILY INFUSION: 24 HR?BASIC FLOW 0.51 ML/H DURATION 16.0 HOURS IN MORNING, AFTERN...
     Route: 058
     Dates: start: 20241230, end: 20250115
  8. FOSCARBIDOPA\FOSLEVODOPA [Suspect]
     Active Substance: FOSCARBIDOPA\FOSLEVODOPA
     Dosage: DURATION OF THE DAILY INFUSION: 24HR?BASIC FLOW 0.55 ML/H DURATION 16 HOURS IN MORNING, AFTERNOON...
     Route: 058
     Dates: start: 20250115, end: 20250225
  9. FOSCARBIDOPA\FOSLEVODOPA [Suspect]
     Active Substance: FOSCARBIDOPA\FOSLEVODOPA
     Dosage: DURATION OF THE DAILY INFUSION: 24HR?BASIC FLOW 0.53 DURATION 16. HOURS IN MORNING, AFTERNOON.?LO...
     Route: 058
     Dates: start: 20250225, end: 20250308
  10. FOSCARBIDOPA\FOSLEVODOPA [Suspect]
     Active Substance: FOSCARBIDOPA\FOSLEVODOPA
     Dosage: LAST ADMIN DATE: 2025.
     Route: 058
     Dates: start: 20250308
  11. CLOZAPINE [Concomitant]
     Active Substance: CLOZAPINE
     Indication: Product used for unknown indication
  12. BENSERAZIDE\LEVODOPA [Concomitant]
     Active Substance: BENSERAZIDE\LEVODOPA
     Indication: Parkinson^s disease
     Dates: start: 20231120

REACTIONS (3)
  - Delirium [Recovering/Resolving]
  - Paranoia [Recovering/Resolving]
  - Aggression [Recovering/Resolving]

NARRATIVE: CASE EVENT DATE: 20250225
